FAERS Safety Report 8781544 (Version 1)
Quarter: 2012Q4

REPORT INFORMATION
  Report Type: 
  Country: US (occurrence: US)
  Receive Date: 20120913
  Receipt Date: 20120913
  Transmission Date: 20130627
  Serious: Yes (Hospitalization, Other)
  Sender: FDA-Public Use
  Company Number: US-PFIZER INC-2012225039

PATIENT
  Age: 66 Year
  Sex: Female
  Weight: 92.06 kg

DRUGS (11)
  1. CHANTIX [Suspect]
     Indication: SMOKING CESSATION THERAPY
     Dosage: 0.5 mg, 1x/day
     Route: 048
  2. CHANTIX [Suspect]
     Dosage: UNK
     Route: 048
  3. CHANTIX [Suspect]
     Dosage: 0.5 mg, 1x/day
     Route: 048
     Dates: start: 201208, end: 201208
  4. CHANTIX [Suspect]
     Dosage: 0.5 mg, 2x/day
     Route: 048
     Dates: start: 201208
  5. METFORMIN [Concomitant]
     Dosage: 2000 mg, 1x/day
  6. OMEPRAZOLE [Concomitant]
     Dosage: 20 mg, 1x/day
  7. SIMVASTATIN [Concomitant]
     Dosage: 40 mg, 1x/day
  8. ASPIRIN [Concomitant]
     Dosage: UNK
  9. LEVEMIR [Concomitant]
     Dosage: UNK, 1x/day
  10. LASOPROL [Concomitant]
     Dosage: UNK, 1x/day
  11. SYMBICORT [Concomitant]
     Dosage: two puffs, 2x/day

REACTIONS (5)
  - Pancreatic carcinoma [Unknown]
  - Depression [Unknown]
  - Blood glucose increased [Unknown]
  - Abnormal dreams [Unknown]
  - Irritability [Unknown]
